FAERS Safety Report 8902598 (Version 3)
Quarter: 2013Q3

REPORT INFORMATION
  Report Type: Report from Study
  Country: DE (occurrence: DE)
  Receive Date: 20121112
  Receipt Date: 20130826
  Transmission Date: 20140515
  Serious: Yes (Hospitalization, Disabling, Other)
  Sender: FDA-Public Use
  Company Number: DE-ROCHE-1154047

PATIENT
  Age: 44 Year
  Sex: Male
  Weight: 89 kg

DRUGS (22)
  1. BEVACIZUMAB [Suspect]
     Indication: BRAIN NEOPLASM MALIGNANT
     Dosage: LAST DOSE PRIOR TO SAE WAS TAKEN ON 24/OCT/2012.
     Route: 042
     Dates: start: 20110817, end: 20121024
  2. IRINOTECAN [Suspect]
     Indication: BRAIN NEOPLASM MALIGNANT
     Dosage: LAST DOSE PRIOR TO SAE WAS TAKEN ON 23/NOV/2011.
     Route: 042
     Dates: start: 20111013, end: 20111123
  3. DEXAMETHASON [Concomitant]
     Route: 065
     Dates: start: 20110816, end: 20110928
  4. LEVETIRACETAM [Concomitant]
     Route: 065
     Dates: start: 20110620, end: 201107
  5. LEVETIRACETAM [Concomitant]
     Route: 065
     Dates: start: 20121108
  6. PANTOPRAZOL [Concomitant]
     Route: 065
     Dates: end: 2011
  7. LASIX [Concomitant]
     Route: 065
     Dates: start: 201107
  8. TALVOSILEN FORTE [Concomitant]
     Dosage: DOSE:2120/4
     Route: 065
     Dates: start: 201107
  9. FORTECORTIN [Concomitant]
     Route: 065
     Dates: start: 201107, end: 20110721
  10. FORTECORTIN [Concomitant]
     Route: 065
     Dates: start: 20110721, end: 20110725
  11. FORTECORTIN [Concomitant]
     Route: 065
     Dates: start: 20110725, end: 20110729
  12. DEXAMETASON [Concomitant]
     Route: 065
     Dates: start: 20110620, end: 201107
  13. LORAZEPAM [Concomitant]
     Route: 065
     Dates: start: 20110620, end: 201107
  14. NEXIUM [Concomitant]
     Route: 065
     Dates: start: 20120331, end: 2012
  15. MUSCORIL [Concomitant]
     Route: 065
     Dates: start: 20120331, end: 20120425
  16. IBUPROFEN [Concomitant]
     Route: 065
     Dates: start: 20120331, end: 20120425
  17. CEFPODOXIME [Concomitant]
     Route: 065
     Dates: start: 20121024, end: 20121030
  18. GRANISETRON [Concomitant]
     Route: 065
     Dates: start: 20111109, end: 20111109
  19. KEVATRIL [Concomitant]
     Dosage: 1 AMPULE
     Route: 065
     Dates: start: 20111026, end: 20111026
  20. KELTICAN [Concomitant]
     Route: 065
     Dates: start: 20120420, end: 2012
  21. VOMEX A [Concomitant]
     Route: 065
     Dates: start: 20111026, end: 20111026
  22. THIAMIN [Concomitant]
     Route: 065
     Dates: start: 20110620, end: 2011

REACTIONS (2)
  - Convulsion [Recovering/Resolving]
  - Cerebral infarction [Not Recovered/Not Resolved]
